FAERS Safety Report 9695346 (Version 1)
Quarter: 2013Q4

REPORT INFORMATION
  Report Type: Spontaneous
  Country: US (occurrence: US)
  Receive Date: 20131119
  Receipt Date: 20131119
  Transmission Date: 20140711
  Serious: No
  Sender: FDA-Public Use
  Company Number: US-BAYER-2013-141322

PATIENT
  Age: 49 Year
  Sex: Female

DRUGS (2)
  1. MAGNEVIST [Suspect]
     Indication: NUCLEAR MAGNETIC RESONANCE IMAGING
     Dosage: 15 ML, ONCE
     Dates: start: 20131104
  2. MAGNEVIST [Suspect]
     Indication: BACK PAIN

REACTIONS (2)
  - Nausea [None]
  - Vomiting [None]
